FAERS Safety Report 6546711-3 (Version None)
Quarter: 2010Q1

REPORT INFORMATION
  Report Type: 
  Country: None (occurrence: None)
  Receive Date: 20100122
  Receipt Date: 20100114
  Transmission Date: 20100710
  Serious: Yes (Death, Other)
  Sender: FDA-Public Use
  Company Number: PL-ROCHE-680342

PATIENT
  Sex: Female

DRUGS (3)
  1. TRASTUZUMAB [Suspect]
     Dosage: LOADING DOSE
     Route: 065
  2. TRASTUZUMAB [Suspect]
     Dosage: MAINTENANCE DOSE
     Route: 065
  3. VINORELBINE [Suspect]
     Dosage: DOSE: 30 MG/M2, 25 MG/M2, 20 OR 15 MG/M2
     Route: 042

REACTIONS (10)
  - ANAEMIA [None]
  - ASTHENIA [None]
  - CARDIOTOXICITY [None]
  - INFECTION [None]
  - MUCOSAL INFLAMMATION [None]
  - NEUTROPENIA [None]
  - POLYNEUROPATHY [None]
  - SEPSIS [None]
  - THROMBOCYTOPENIA [None]
  - VOMITING [None]
